FAERS Safety Report 20564375 (Version 1)
Quarter: 2022Q1

REPORT INFORMATION
  Report Type: Spontaneous
  Country: FR (occurrence: FR)
  Receive Date: 20220308
  Receipt Date: 20220308
  Transmission Date: 20220423
  Serious: Yes (Other)
  Sender: FDA-Public Use
  Company Number: FR-TEVA-2022-FR-2007129

PATIENT
  Age: 53 Year
  Sex: Female

DRUGS (4)
  1. VENLAFAXINE [Suspect]
     Active Substance: VENLAFAXINE HYDROCHLORIDE
     Indication: Major depression
     Dosage: UNK
     Route: 065
  2. ESCITALOPRAM [Suspect]
     Active Substance: ESCITALOPRAM OXALATE
     Indication: Major depression
     Dosage: UNK
     Route: 065
  3. NITROUS OXIDE [Suspect]
     Active Substance: NITROUS OXIDE
     Indication: Depression
     Dosage: UNK,(9 AND 12 LITERS/MINUTE FOR 1 HOUR), 50% N2O/50% O2; RECEIVED THOUGH FACIAL MASK WITH GAS FLOW O
     Route: 065
  4. NITROUS OXIDE [Suspect]
     Active Substance: NITROUS OXIDE
     Indication: Major depression

REACTIONS (4)
  - Vomiting [Recovered/Resolved]
  - Nausea [Recovered/Resolved]
  - Dissociative disorder [Recovered/Resolved]
  - Drug ineffective [Unknown]
